FAERS Safety Report 5900247-9 (Version None)
Quarter: 2008Q3

REPORT INFORMATION
  Report Type: 
  Country: None (occurrence: None)
  Receive Date: 20080926
  Receipt Date: 20080918
  Transmission Date: 20090109
  Serious: Yes (Other)
  Sender: FDA-Public Use
  Company Number: US-JNJCH-2008024130

PATIENT
  Age: 21 Year
  Sex: Female

DRUGS (1)
  1. VISINE EYE DROPS [Suspect]
     Indication: DRUG USE FOR UNKNOWN INDICATION
     Dosage: TEXT:UNSPECIFIED
     Route: 047

REACTIONS (4)
  - ACTIVITIES OF DAILY LIVING IMPAIRED [None]
  - EYE INJURY [None]
  - EYE SWELLING [None]
  - HYPERSENSITIVITY [None]
